FAERS Safety Report 6969355-8 (Version None)
Quarter: 2010Q3

REPORT INFORMATION
  Report Type: 
  Country: None (occurrence: None)
  Receive Date: 20100902
  Receipt Date: 20100824
  Transmission Date: 20110219
  Serious: Yes (Hospitalization)
  Sender: FDA-Public Use
  Company Number: 2010MA002111

PATIENT
  Age: 78 Year
  Sex: Female

DRUGS (10)
  1. TRAMADOL HYDROCHLORIDE [Suspect]
     Indication: OSTEOARTHRITIS
     Dosage: 50 MG; BID; PO
     Route: 048
     Dates: start: 20100815, end: 20100817
  2. URSODIOL [Concomitant]
  3. LEVOTHYROXINE SODIUM [Concomitant]
  4. STRONTIUM RANELATE [Concomitant]
  5. CALCICHEW D3 [Concomitant]
  6. LISINOPRIL [Concomitant]
  7. ROSUVASTATIN [Concomitant]
  8. ACETYLSALICYLIC ACID [Concomitant]
  9. ACETAMINOPHEN AND CODEINE PHOSPHATE [Concomitant]
  10. BUTRANS [Concomitant]

REACTIONS (3)
  - CONFUSIONAL STATE [None]
  - DYSARTHRIA [None]
  - SOMNOLENCE [None]
